FAERS Safety Report 5789239-0 (Version None)
Quarter: 2008Q2

REPORT INFORMATION
  Report Type: 
  Country: None (occurrence: None)
  Receive Date: 20080626
  Receipt Date: 20080110
  Transmission Date: 20081010
  Serious: No
  Sender: FDA-Public Use
  Company Number: US-ASTRAZENECA-2008UW00730

PATIENT
  Age: 6 Year
  Sex: Male

DRUGS (2)
  1. PULMICORT RESPULES [Suspect]
     Route: 055
  2. PULMICORT RESPULES [Suspect]
     Route: 055

REACTIONS (1)
  - MOOD ALTERED [None]
